FAERS Safety Report 4704628-0 (Version None)
Quarter: 2005Q2

REPORT INFORMATION
  Report Type: 
  Country: None (occurrence: None)
  Receive Date: 20050630
  Receipt Date: 20050627
  Transmission Date: 20051028
  Serious: Yes (Hospitalization)
  Sender: FDA-Public Use
  Company Number: US-MERCK-0506USA03778

PATIENT
  Age: 33 Year
  Sex: Male

DRUGS (2)
  1. COGENTIN [Suspect]
     Route: 048
     Dates: start: 20040101
  2. RISPERDAL [Suspect]
     Indication: SCHIZOPHRENIA
     Route: 065
     Dates: start: 20040101

REACTIONS (2)
  - AGGRESSION [None]
  - TREMOR [None]
